FAERS Safety Report 9776508 (Version 1)
Quarter: 2013Q4

REPORT INFORMATION
  Report Type: Spontaneous
  Country: ES (occurrence: ES)
  Receive Date: 20131220
  Receipt Date: 20131220
  Transmission Date: 20140711
  Serious: Yes (Death)
  Sender: FDA-Public Use
  Company Number: ES-ASTRAZENECA-2013SE92055

PATIENT
  Sex: 0

DRUGS (2)
  1. MEROPENEM [Suspect]
     Indication: KLEBSIELLA SEPSIS
     Route: 042
  2. TIGECYCLINE [Suspect]
     Indication: SEPSIS
     Route: 065

REACTIONS (1)
  - Death [Fatal]
